FAERS Safety Report 23314280 (Version 1)
Quarter: 2023Q4

REPORT INFORMATION
  Report Type: Spontaneous
  Country: US (occurrence: US)
  Receive Date: 20231219
  Receipt Date: 20231219
  Transmission Date: 20240110
  Serious: No
  Sender: FDA-Public Use
  Company Number: US-ELI_LILLY_AND_COMPANY-US202312010315

PATIENT
  Age: 82 Year
  Sex: Female

DRUGS (1)
  1. FORTEO [Suspect]
     Active Substance: TERIPARATIDE
     Indication: Osteoporosis
     Dosage: 20 UG, UNKNOWN
     Route: 058
     Dates: start: 20231206

REACTIONS (5)
  - Injection site bruising [Unknown]
  - Injection site pain [Recovered/Resolved]
  - Injection site haemorrhage [Unknown]
  - Incorrect dose administered [Unknown]
  - Pain [Recovered/Resolved]

NARRATIVE: CASE EVENT DATE: 20231214
